FAERS Safety Report 9368270 (Version 2)
Quarter: 2013Q3

REPORT INFORMATION
  Report Type: Spontaneous
  Country: US (occurrence: US)
  Receive Date: 20130625
  Receipt Date: 20130820
  Transmission Date: 20140515
  Serious: Yes (Hospitalization)
  Sender: FDA-Public Use
  Company Number: US-SANOFI-AVENTIS-2013SA063338

PATIENT
  Age: 87 Year
  Sex: Male
  Weight: 90.71 kg

DRUGS (10)
  1. ENOXAPARIN SODIUM - WINTHROP [Suspect]
     Indication: THROMBOSIS
     Dosage: DOSE:150 MILLIGRAM(S)/MILLILITRE
     Route: 051
     Dates: start: 20130614, end: 20130617
  2. COUMADIN [Concomitant]
  3. AVASTIN [Concomitant]
     Indication: NEOPLASM MALIGNANT
  4. MULTIVITAMINS [Concomitant]
     Indication: ROUTINE HEALTH MAINTENANCE
     Route: 065
     Dates: start: 2011
  5. FOLIC ACID [Concomitant]
     Indication: ROUTINE HEALTH MAINTENANCE
     Route: 065
     Dates: start: 201304
  6. DEXAMETHASONE [Concomitant]
     Indication: ADVERSE DRUG REACTION
     Route: 048
     Dates: start: 20130613, end: 20130615
  7. ALIMTA [Concomitant]
     Indication: NEOPLASM MALIGNANT
     Route: 065
     Dates: start: 20130614, end: 20130614
  8. PEMETREXED [Concomitant]
     Indication: NEOPLASM MALIGNANT
     Route: 065
     Dates: start: 20130614, end: 20130614
  9. CISPLATIN [Concomitant]
     Indication: NEOPLASM MALIGNANT
     Route: 065
     Dates: start: 20130614, end: 20130614
  10. WARFARIN [Concomitant]
     Indication: THROMBOSIS

REACTIONS (2)
  - Haemoglobin decreased [Recovered/Resolved]
  - Epistaxis [Recovered/Resolved]
